FAERS Safety Report 17347752 (Version 1)
Quarter: 2020Q1

REPORT INFORMATION
  Report Type: Spontaneous
  Country: CA (occurrence: CA)
  Receive Date: 20200129
  Receipt Date: 20200129
  Transmission Date: 20200409
  Serious: No
  Sender: FDA-Public Use
  Company Number: CA-EXELIXIS-CABO-19025215

PATIENT
  Age: 62 Year
  Sex: Male

DRUGS (3)
  1. CABOMETYX [Suspect]
     Active Substance: CABOZANTINIB S-MALATE
     Dosage: 40 MG,QD
     Route: 048
  2. ANALGESIC [Concomitant]
     Active Substance: UNSPECIFIED INGREDIENT
  3. CABOMETYX [Suspect]
     Active Substance: CABOZANTINIB S-MALATE
     Indication: METASTASES TO KIDNEY
     Dosage: 60 MG, QD
     Route: 048
     Dates: start: 201909

REACTIONS (2)
  - Gingival ulceration [Recovering/Resolving]
  - Off label use [Unknown]
